FAERS Safety Report 24347717 (Version 4)
Quarter: 2024Q4

REPORT INFORMATION
  Report Type: Spontaneous
  Country: AU (occurrence: AU)
  Receive Date: 20240922
  Receipt Date: 20241129
  Transmission Date: 20250114
  Serious: Yes (Other)
  Sender: NOVARTIS
  Company Number: AU-SUN PHARMACEUTICAL INDUSTRIES LTD-2024RR-465251

PATIENT
  Age: 35 Year
  Sex: Female

DRUGS (7)
  1. ADALIMUMAB [Suspect]
     Active Substance: ADALIMUMAB
     Indication: Pyoderma gangrenosum
     Dosage: UNK
     Route: 065
  2. TACROLIMUS [Suspect]
     Active Substance: TACROLIMUS
     Indication: Pyoderma gangrenosum
     Dosage: UNK
     Route: 065
  3. PREDNISOLONE [Suspect]
     Active Substance: PREDNISOLONE
     Indication: Pyoderma gangrenosum
     Dosage: UNK
     Route: 065
  4. CYCLOSPORINE [Suspect]
     Active Substance: CYCLOSPORINE
     Indication: Pyoderma gangrenosum
     Dosage: UNK
     Route: 065
  5. AZATHIOPRINE [Suspect]
     Active Substance: AZATHIOPRINE
     Indication: Pyoderma gangrenosum
     Dosage: UNK
     Route: 065
  6. REMICADE [Suspect]
     Active Substance: INFLIXIMAB
     Indication: Pyoderma gangrenosum
     Dosage: UNK (INTRAVENOUS INFUSION)
     Route: 041
  7. STELARA [Suspect]
     Active Substance: USTEKINUMAB
     Indication: Pyoderma gangrenosum
     Dosage: UNK
     Route: 058

REACTIONS (5)
  - Adverse event [Unknown]
  - Disease recurrence [Unknown]
  - Pyoderma gangrenosum [Unknown]
  - Drug ineffective [Unknown]
  - Off label use [Unknown]
